FAERS Safety Report 4514784-5 (Version None)
Quarter: 2004Q4

REPORT INFORMATION
  Report Type: 
  Country: None (occurrence: None)
  Receive Date: 20041124
  Receipt Date: 20041124
  Transmission Date: 20050328
  Serious: Yes (Hospitalization)
  Sender: FDA-Public Use
  Company Number: None

PATIENT
  Sex: Female
  Weight: 52.2 kg

DRUGS (15)
  1. ZOSYN [Suspect]
     Indication: CELLULITIS
     Dosage: 3.375GM    EVERY 6 HOURS    INTRAVENOU
     Route: 042
     Dates: start: 20041101, end: 20041115
  2. ZOSYN [Suspect]
     Dosage: 3.375GM    EVERY 6 HOURS    INTRAVENOU
     Route: 042
  3. DURAGESIC [Concomitant]
  4. CARTIA XT [Concomitant]
  5. PROTONIX [Concomitant]
  6. MODURETIC 5-50 [Concomitant]
  7. LASIX [Concomitant]
  8. PREMARIN [Concomitant]
  9. PAXIL [Concomitant]
  10. GABITRIL [Concomitant]
  11. SINGULAIR [Concomitant]
  12. TRICOR [Concomitant]
  13. AMITRIPTYLINE HCL [Concomitant]
  14. ASPIRIN [Concomitant]
  15. REGLAN [Concomitant]

REACTIONS (3)
  - DIARRHOEA [None]
  - NAUSEA [None]
  - VOMITING [None]
